FAERS Safety Report 9879069 (Version 3)
Quarter: 2014Q1

REPORT INFORMATION
  Report Type: Report from Study
  Country: EE (occurrence: EE)
  Receive Date: 20140206
  Receipt Date: 20140217
  Transmission Date: 20141002
  Serious: No
  Sender: FDA-Public Use
  Company Number: EE-ROCHE-1333272

PATIENT
  Age: 52 Year
  Sex: Female
  Weight: 57 kg

DRUGS (7)
  1. TRASTUZUMAB EMTANSINE [Suspect]
     Indication: BREAST CANCER METASTATIC
     Dosage: LAST DATE PRIOR TO SAE: 17/DEC/2013.
     Route: 042
     Dates: start: 20131015, end: 20140107
  2. VIMOVO [Concomitant]
     Indication: PAIN
     Route: 065
     Dates: start: 20140107
  3. PREDNISOLON [Concomitant]
     Indication: MUSCULAR WEAKNESS
     Route: 065
     Dates: start: 20140107
  4. CIPRINOL [Concomitant]
     Indication: BODY TEMPERATURE INCREASED
     Route: 065
     Dates: start: 20140107, end: 20140114
  5. NEURONTIN (GABAPENTIN) [Concomitant]
     Indication: PAIN
     Route: 065
     Dates: start: 20140109
  6. OXYCONTIN [Concomitant]
     Indication: PAIN
     Route: 065
     Dates: start: 20140109
  7. NAPROXEN [Concomitant]
     Indication: BACK PAIN
     Route: 065
     Dates: start: 20131127, end: 20131129

REACTIONS (1)
  - Aspartate aminotransferase increased [Unknown]
